FAERS Safety Report 12263973 (Version 2)
Quarter: 2016Q2

REPORT INFORMATION
  Report Type: Report from Study
  Country: US (occurrence: US)
  Receive Date: 20160413
  Receipt Date: 20160513
  Transmission Date: 20160815
  Serious: Yes (Hospitalization)
  Sender: FDA-Public Use
  Company Number: US-JNJFOC-20160410880

PATIENT
  Age: 87 Year
  Sex: Male

DRUGS (2)
  1. IMBRUVICA [Suspect]
     Active Substance: IBRUTINIB
     Indication: OFF LABEL USE
     Route: 048
     Dates: start: 20160217, end: 20160220
  2. IMBRUVICA [Suspect]
     Active Substance: IBRUTINIB
     Indication: DIFFUSE LARGE B-CELL LYMPHOMA
     Route: 048
     Dates: start: 20160217, end: 20160220

REACTIONS (8)
  - Sepsis [Unknown]
  - Asthenia [Unknown]
  - Off label use [Not Recovered/Not Resolved]
  - Nausea [Unknown]
  - Pneumonia aspiration [Recovered/Resolved]
  - Product use issue [Not Recovered/Not Resolved]
  - Hypotension [Unknown]
  - Vomiting [Unknown]

NARRATIVE: CASE EVENT DATE: 2016
